FAERS Safety Report 8383994-1 (Version None)
Quarter: 2012Q2

REPORT INFORMATION
  Report Type: 
  Country: None (occurrence: None)
  Receive Date: 20120524
  Receipt Date: 20120509
  Transmission Date: 20120825
  Serious: Yes (Hospitalization)
  Sender: FDA-Public Use
  Company Number: FR-ROCHE-1067630

PATIENT
  Sex: Male
  Weight: 70 kg

DRUGS (15)
  1. SOLIAN [Suspect]
  2. ASPIRIN [Concomitant]
  3. CLONAZEPAM [Suspect]
     Indication: PRODUCT USED FOR UNKNOWN INDICATION
     Route: 048
     Dates: end: 20110406
  4. SOLIAN [Suspect]
     Indication: PRODUCT USED FOR UNKNOWN INDICATION
     Dosage: 200 MG; 2 TABLETS DAILY
     Route: 048
  5. SOLIAN [Suspect]
     Route: 048
     Dates: start: 20110418
  6. ZOLPIDEM TARTRATE [Suspect]
     Indication: PRODUCT USED FOR UNKNOWN INDICATION
     Route: 048
     Dates: end: 20110417
  7. NEXIUM [Concomitant]
  8. AMLODIPINE BESYLATE [Concomitant]
  9. FOLIC ACID [Concomitant]
  10. TRIMEPRAZINE TARTRATE [Suspect]
     Indication: PRODUCT USED FOR UNKNOWN INDICATION
     Dosage: STRENGTH: 40 MG/ML
     Route: 048
  11. ESCITALOPRAM [Suspect]
     Indication: PRODUCT USED FOR UNKNOWN INDICATION
     Dates: end: 20110406
  12. FORLAX (FRANCE) [Concomitant]
  13. SOLIAN [Suspect]
     Route: 048
     Dates: start: 20110411, end: 20110418
  14. TRIMEPRAZINE TARTRATE [Suspect]
  15. FUNGIZONE [Concomitant]

REACTIONS (2)
  - FALL [None]
  - EXTRAPYRAMIDAL DISORDER [None]
